FAERS Safety Report 5632268-8 (Version None)
Quarter: 2008Q1

REPORT INFORMATION
  Report Type: 
  Country: None (occurrence: None)
  Receive Date: 20080220
  Receipt Date: 20080211
  Transmission Date: 20080703
  Serious: Yes (Hospitalization)
  Sender: FDA-Public Use
  Company Number: GB-BAUSCH-2008BL000577

PATIENT
  Age: 73 Year
  Sex: Female

DRUGS (4)
  1. PREDNISOLONE [Suspect]
     Indication: PRODUCTIVE COUGH
  2. PREDNISOLONE [Suspect]
     Indication: DYSPNOEA
  3. LEVOFLOXACIN [Suspect]
     Indication: PRODUCTIVE COUGH
  4. LEVOFLOXACIN [Suspect]
     Indication: DYSPNOEA

REACTIONS (1)
  - TENDON RUPTURE [None]
